FAERS Safety Report 6793555-3 (Version None)
Quarter: 2010Q2

REPORT INFORMATION
  Report Type: 
  Country: None (occurrence: None)
  Receive Date: 20100624
  Receipt Date: 20090126
  Transmission Date: 20101027
  Serious: No
  Sender: FDA-Public Use
  Company Number: US-PFIZER INC-2008098978

PATIENT
  Sex: Female
  Weight: 102 kg

DRUGS (3)
  1. SUTENT [Suspect]
     Indication: METASTASES TO LUNG
     Dates: start: 20080701
  2. SYNTHROID [Concomitant]
  3. DICLOFENAC [Concomitant]

REACTIONS (4)
  - DYSGEUSIA [None]
  - HAIR COLOUR CHANGES [None]
  - MOUTH ULCERATION [None]
  - NEUTROPENIA [None]
